FAERS Safety Report 12310649 (Version 1)
Quarter: 2016Q2

REPORT INFORMATION
  Report Type: Spontaneous
  Country: US (occurrence: US)
  Receive Date: 20160427
  Receipt Date: 20160427
  Transmission Date: 20160815
  Serious: Yes (Other)
  Sender: FDA-Public Use
  Company Number: US-PFIZER INC-2016218251

PATIENT
  Age: 28 Year
  Sex: Female
  Weight: 89 kg

DRUGS (1)
  1. ANBESOL REGULAR STRENGTH GEL [Suspect]
     Active Substance: BENZOCAINE
     Dosage: PUT ON A QTIP AND PLACED QTIP ON TOOTH AREA, WAS NOT THERE FOR VERY LONG
     Dates: start: 20160412, end: 20160412

REACTIONS (4)
  - Hypersensitivity [Not Recovered/Not Resolved]
  - Chemical burn of gastrointestinal tract [Not Recovered/Not Resolved]
  - Oral mucosal eruption [Not Recovered/Not Resolved]
  - Dry mouth [Not Recovered/Not Resolved]

NARRATIVE: CASE EVENT DATE: 20160412
